FAERS Safety Report 8575542-8 (Version None)
Quarter: 2012Q3

REPORT INFORMATION
  Report Type: 
  Country: None (occurrence: None)
  Receive Date: 20120807
  Receipt Date: 20120802
  Transmission Date: 20120928
  Serious: Yes (Other)
  Sender: FDA-Public Use
  Company Number: PHHY2012BR040566

PATIENT
  Age: 43 Year
  Sex: Male

DRUGS (5)
  1. CEDUR [Concomitant]
     Dosage: 1 DF, QD (ONCE AT NIGHT)
  2. FORMOTEROL FUMARATE [Suspect]
     Indication: ASTHMA
     Dosage: 1 DF, QD
     Dates: start: 20070101
  3. CARDIZEM [Concomitant]
     Dosage: 1 DF, UNK
  4. PRESSAT [Concomitant]
     Dosage: 1 DF, QD (IN MORNING)
  5. ASPIRIN [Concomitant]
     Dosage: 2 DF, QD (AFTER LUNCH)

REACTIONS (3)
  - SKIN DISCOLOURATION [None]
  - HYPERHIDROSIS [None]
  - DYSPNOEA [None]
